FAERS Safety Report 6508459-0 (Version None)
Quarter: 2009Q4

REPORT INFORMATION
  Report Type: 
  Country: None (occurrence: None)
  Receive Date: 20091221
  Receipt Date: 20081113
  Transmission Date: 20100525
  Serious: No
  Sender: FDA-Public Use
  Company Number: US-ASTRAZENECA-2008UW25483

PATIENT
  Age: 76 Year
  Sex: Male
  Weight: 88.5 kg

DRUGS (8)
  1. CRESTOR [Suspect]
     Indication: BLOOD CHOLESTEROL INCREASED
     Route: 048
     Dates: start: 20030101, end: 20081113
  2. AVAPRO [Concomitant]
  3. ARAVA [Concomitant]
  4. ATENOLOL [Concomitant]
  5. NIACIN [Concomitant]
  6. MULTI-VITAMINS [Concomitant]
  7. PREDNISONE [Concomitant]
  8. LIPIZIDE [Concomitant]

REACTIONS (1)
  - MUSCLE SPASMS [None]
